FAERS Safety Report 19837360 (Version 1)
Quarter: 2021Q3

REPORT INFORMATION
  Report Type: Spontaneous
  Country: CA (occurrence: CA)
  Receive Date: 20210916
  Receipt Date: 20210916
  Transmission Date: 20211014
  Serious: Yes (Other)
  Sender: FDA-Public Use
  Company Number: CA-ACCORD-238647

PATIENT
  Age: 70 Year
  Sex: Female

DRUGS (9)
  1. IRBESARTAN. [Concomitant]
     Active Substance: IRBESARTAN
     Dosage: 1 EVERY 1 DAYS
     Route: 048
  2. ESCITALOPRAM [Concomitant]
     Active Substance: ESCITALOPRAM OXALATE
     Route: 065
  3. CELEBREX [Concomitant]
     Active Substance: CELECOXIB
     Dosage: 1 EVERY 1 DAYS
     Route: 048
  4. BRIMONIDINE/TIMOLOL [Concomitant]
     Active Substance: BRIMONIDINE TARTRATE\TIMOLOL MALEATE
     Route: 065
  5. OMNARIS [Concomitant]
     Active Substance: CICLESONIDE
     Dosage: SPRAY, METERED DOSE
     Route: 065
  6. METHOTREXATE. [Suspect]
     Active Substance: METHOTREXATE
     Indication: PRODUCT USED FOR UNKNOWN INDICATION
     Route: 065
  7. LEFLUNOMIDE. [Suspect]
     Active Substance: LEFLUNOMIDE
     Indication: PRODUCT USED FOR UNKNOWN INDICATION
     Route: 065
  8. DIFLUPREDNATE [Concomitant]
     Active Substance: DIFLUPREDNATE
     Route: 065
  9. LORAZEPAM. [Concomitant]
     Active Substance: LORAZEPAM
     Dosage: 1 EVERY 1 DAYS
     Route: 048

REACTIONS (9)
  - Infection [Unknown]
  - Osteomyelitis [Unknown]
  - Transaminases increased [Unknown]
  - Rheumatoid factor positive [Unknown]
  - Musculoskeletal stiffness [Unknown]
  - Treatment failure [Unknown]
  - Pain [Unknown]
  - Swelling [Unknown]
  - Fatigue [Unknown]
